APPROVED DRUG PRODUCT: LIDOCATON
Active Ingredient: EPINEPHRINE; LIDOCAINE HYDROCHLORIDE
Strength: 0.02MG/ML;2%
Dosage Form/Route: INJECTABLE;INJECTION
Application: A084728 | Product #001
Applicant: PHARMATON LTD
Approved: Aug 17, 1983 | RLD: No | RS: No | Type: DISCN